FAERS Safety Report 12452629 (Version 1)
Quarter: 2016Q2

REPORT INFORMATION
  Report Type: Spontaneous
  Country: FR (occurrence: FR)
  Receive Date: 20160609
  Receipt Date: 20160609
  Transmission Date: 20160815
  Serious: Yes (Hospitalization)
  Sender: FDA-Public Use
  Company Number: FR-B. BRAUN MEDICAL INC.-1053608

PATIENT
  Age: 52 Year
  Sex: Female

DRUGS (2)
  1. METRONIDAZOLE. [Suspect]
     Active Substance: METRONIDAZOLE
     Route: 042
     Dates: start: 20151215, end: 20151215
  2. LEVOFLOXACIN. [Suspect]
     Active Substance: LEVOFLOXACIN
     Route: 042
     Dates: start: 20151215, end: 20151215

REACTIONS (6)
  - Pruritus [None]
  - Hypersensitivity [None]
  - Aphonia [None]
  - Angioedema [None]
  - Respiratory distress [None]
  - Rash [None]
